FAERS Safety Report 12625634 (Version 1)
Quarter: 2016Q3

REPORT INFORMATION
  Report Type: Spontaneous
  Country: US (occurrence: None)
  Receive Date: 20160804
  Receipt Date: 20160804
  Transmission Date: 20161109
  Serious: Yes (Hospitalization)
  Sender: FDA-Public Use
  Company Number: None

PATIENT
  Age: 80 Year
  Sex: Female
  Weight: 67.95 kg

DRUGS (18)
  1. ALPRAZOLAM. [Concomitant]
     Active Substance: ALPRAZOLAM
  2. MORPHINE [Concomitant]
     Active Substance: MORPHINE
  3. ZEPATIER [Suspect]
     Active Substance: ELBASVIR\GRAZOPREVIR
     Indication: HEPATITIS C
     Dosage: 50MG/100MG QD ORAL
     Route: 048
     Dates: start: 20160428, end: 20160720
  4. VITAMIN B COMPLEX [Concomitant]
     Active Substance: CYANOCOBALAMIN\DEXPANTHENOL\NIACINAMIDE\PYRIDOXINE HYDROCHLORIDE\RIBOFLAVIN 5^-PHOSPHATE SODIUM\THIAMINE HYDROCHLORIDE\VITAMIN B COMPLEX
  5. C [Concomitant]
  6. RENAL MULTIVITAMIN [Concomitant]
  7. CLONIDINE. [Concomitant]
     Active Substance: CLONIDINE
  8. AMLODIPINE [Concomitant]
     Active Substance: AMLODIPINE BESYLATE
  9. SODIUM CHLORIDE. [Concomitant]
     Active Substance: SODIUM CHLORIDE
  10. HEPARIN [Concomitant]
     Active Substance: HEPARIN SODIUM
  11. METOPROLOL. [Concomitant]
     Active Substance: METOPROLOL
  12. HUMALOG [Concomitant]
     Active Substance: INSULIN LISPRO
  13. LANTHANUM CARBONATE. [Concomitant]
     Active Substance: LANTHANUM CARBONATE
  14. FOLIC ACID. [Concomitant]
     Active Substance: FOLIC ACID
  15. VALSARTAN. [Concomitant]
     Active Substance: VALSARTAN
  16. GABAPENTIN. [Concomitant]
     Active Substance: GABAPENTIN
  17. AMARYL [Concomitant]
     Active Substance: GLIMEPIRIDE
  18. ASPIRIN. [Concomitant]
     Active Substance: ASPIRIN

REACTIONS (2)
  - Chest pain [None]
  - Musculoskeletal pain [None]

NARRATIVE: CASE EVENT DATE: 20160508
